FAERS Safety Report 6630822-8 (Version None)
Quarter: 2010Q1

REPORT INFORMATION
  Report Type: 
  Country: None (occurrence: None)
  Receive Date: 20100311
  Receipt Date: 20100303
  Transmission Date: 20100710
  Serious: Yes (Hospitalization)
  Sender: FDA-Public Use
  Company Number: ES-ABBOTT-10P-144-0622877-00

PATIENT
  Age: 46 Year
  Sex: Female

DRUGS (10)
  1. ZEMPLAR [Suspect]
     Indication: HYPERPARATHYROIDISM SECONDARY
     Route: 048
     Dates: start: 20091119, end: 20100105
  2. ZEMPLAR [Suspect]
     Indication: DIABETES MELLITUS
     Dates: start: 20091027, end: 20091119
  3. HIDROXIL [Concomitant]
     Indication: DRUG USE FOR UNKNOWN INDICATION
  4. ISCOVER [Concomitant]
     Indication: DRUG USE FOR UNKNOWN INDICATION
  5. COZAAR [Concomitant]
     Indication: DRUG USE FOR UNKNOWN INDICATION
  6. COROPRESS [Concomitant]
     Indication: DRUG USE FOR UNKNOWN INDICATION
  7. OMEPRAZOL [Concomitant]
     Indication: DRUG USE FOR UNKNOWN INDICATION
  8. ZOCOR [Concomitant]
     Indication: DRUG USE FOR UNKNOWN INDICATION
  9. LEXATIN [Concomitant]
     Indication: DRUG USE FOR UNKNOWN INDICATION
  10. ALMAX [Concomitant]
     Indication: DRUG USE FOR UNKNOWN INDICATION

REACTIONS (4)
  - DYSGEUSIA [None]
  - ILL-DEFINED DISORDER [None]
  - PHARYNGITIS [None]
  - STAPHYLOCOCCAL BACTERAEMIA [None]
